FAERS Safety Report 5415722-3 (Version None)
Quarter: 2007Q3

REPORT INFORMATION
  Report Type: 
  Country: None (occurrence: None)
  Receive Date: 20070815
  Receipt Date: 20061010
  Transmission Date: 20080115
  Serious: Yes (Other)
  Sender: FDA-Public Use
  Company Number: US-PFIZER INC-2006125517

PATIENT
  Sex: Female
  Weight: 86.2 kg

DRUGS (7)
  1. NEURONTIN [Suspect]
     Indication: DIABETIC NEUROPATHY
     Dates: start: 20040601, end: 20061001
  2. LYRICA [Suspect]
     Indication: DIABETIC NEUROPATHY
  3. GLUCOPHAGE [Concomitant]
     Dosage: DAILY DOSE:1000MG-FREQ:DAILY
  4. AMARYL [Concomitant]
     Dosage: DAILY DOSE:4MG-FREQ:DAILY
  5. AVANDIA [Concomitant]
  6. VASOTEC [Concomitant]
  7. PRILOSEC [Concomitant]

REACTIONS (17)
  - ANAEMIA [None]
  - ANGIOPATHY [None]
  - ARTHROPATHY [None]
  - BALANCE DISORDER [None]
  - BODY HEIGHT DECREASED [None]
  - DRUG EFFECT DECREASED [None]
  - DRUG INEFFECTIVE [None]
  - HYPOTHYROIDISM [None]
  - IIIRD NERVE DISORDER [None]
  - KNEE OPERATION [None]
  - NERVE INJURY [None]
  - NEUROPATHY [None]
  - OSTEOPENIA [None]
  - PSYCHOMOTOR HYPERACTIVITY [None]
  - SLEEP DISORDER [None]
  - SOMNOLENCE [None]
  - VISUAL ACUITY REDUCED [None]
